FAERS Safety Report 6368114-7 (Version None)
Quarter: 2009Q3

REPORT INFORMATION
  Report Type: 
  Country: None (occurrence: None)
  Receive Date: 20090922
  Receipt Date: 20090910
  Transmission Date: 20100115
  Serious: Yes (Hospitalization)
  Sender: FDA-Public Use
  Company Number: US-AMGEN-US363762

PATIENT
  Sex: Female
  Weight: 60.5 kg

DRUGS (16)
  1. PANITUMUMAB [Suspect]
     Indication: NEOPLASM MALIGNANT
     Route: 042
     Dates: start: 20090812, end: 20090902
  2. CISPLATIN [Suspect]
     Route: 042
     Dates: start: 20090812, end: 20090902
  3. CARDIZEM [Concomitant]
     Route: 048
     Dates: start: 19940101
  4. XANAX [Concomitant]
     Route: 048
     Dates: start: 19940101
  5. TYLENOL (CAPLET) [Concomitant]
     Dates: start: 20090601
  6. ROXICET [Concomitant]
     Route: 048
     Dates: start: 20090601
  7. NYSTATIN [Concomitant]
     Dates: start: 20090701
  8. ALOXI [Concomitant]
     Route: 042
     Dates: start: 20090801
  9. DECADRON [Concomitant]
     Route: 042
     Dates: start: 20090801
  10. EMEND [Concomitant]
     Route: 042
     Dates: start: 20090801
  11. EMEND [Concomitant]
     Route: 048
     Dates: start: 20090801
  12. COMPAZINE [Concomitant]
     Route: 048
     Dates: start: 20090801
  13. CIPROFLAXACIN [Concomitant]
     Route: 048
     Dates: start: 20090901
  14. TUMS [Concomitant]
     Route: 048
     Dates: start: 20090901
  15. DULCOLAX [Concomitant]
     Route: 054
     Dates: start: 20090801
  16. PRILOSEC [Concomitant]
     Route: 048

REACTIONS (5)
  - DIARRHOEA [None]
  - HAEMOGLOBIN DECREASED [None]
  - HYPOCALCAEMIA [None]
  - MUSCULAR WEAKNESS [None]
  - WHITE BLOOD CELL COUNT DECREASED [None]
